FAERS Safety Report 18494264 (Version 1)
Quarter: 2020Q4

REPORT INFORMATION
  Report Type: Report from Study
  Country: None (occurrence: US)
  Receive Date: 20201111
  Receipt Date: 20201111
  Transmission Date: 20210114
  Serious: Yes (Hospitalization, Other)
  Sender: FDA-Public Use
  Company Number: US-ABBVIE-20K-163-3642567-00

PATIENT
  Sex: Male

DRUGS (1)
  1. VENCLEXTA [Suspect]
     Active Substance: VENETOCLAX
     Indication: ACUTE MYELOID LEUKAEMIA
     Route: 048
     Dates: start: 20200427

REACTIONS (5)
  - Hospitalisation [Unknown]
  - Asthenia [Unknown]
  - Blast cell count increased [Not Recovered/Not Resolved]
  - Mental status changes [Unknown]
  - Dizziness [Unknown]

NARRATIVE: CASE EVENT DATE: 2020
